FAERS Safety Report 25034544 (Version 2)
Quarter: 2025Q1

REPORT INFORMATION
  Report Type: Spontaneous
  Country: CN (occurrence: CN)
  Receive Date: 20250304
  Receipt Date: 20250313
  Transmission Date: 20250409
  Serious: Yes (Life-Threatening, Hospitalization, Other)
  Sender: ALKEM
  Company Number: None

PATIENT
  Age: 67 Year
  Sex: Male
  Weight: 55 kg

DRUGS (4)
  1. MYCOPHENOLATE MOFETIL [Suspect]
     Active Substance: MYCOPHENOLATE MOFETIL
     Indication: Immunosuppressant drug therapy
     Dosage: 720 MILLIGRAM, QD (EVERY 1 DAY)
     Route: 065
     Dates: end: 20230625
  2. TACROLIMUS [Suspect]
     Active Substance: TACROLIMUS
     Indication: Immunosuppressant drug therapy
     Dosage: 2 MILLIGRAM, QD (EVERY 1 DAY)
     Route: 065
     Dates: end: 20230625
  3. METHYLPREDNISOLONE [Suspect]
     Active Substance: METHYLPREDNISOLONE
     Indication: Immunosuppressant drug therapy
     Dosage: 8 MILLIGRAM, QD (EVERY 1 DAY)
     Route: 065
     Dates: end: 20230625
  4. MEROPENEM [Concomitant]
     Active Substance: MEROPENEM
     Indication: Antibiotic prophylaxis
     Dosage: 1 GRAM, TID (DAY 18-44)
     Route: 042

REACTIONS (8)
  - Acute respiratory distress syndrome [Recovering/Resolving]
  - Bordetella infection [Recovering/Resolving]
  - Pneumocystis jirovecii pneumonia [Recovering/Resolving]
  - Aspergillus infection [Recovering/Resolving]
  - Atelectasis [Recovered/Resolved]
  - Pleural effusion [Recovered/Resolved]
  - Fungal infection [Recovering/Resolving]
  - Herpes simplex [Recovering/Resolving]

NARRATIVE: CASE EVENT DATE: 20230625
